FAERS Safety Report 5131182-4 (Version None)
Quarter: 2006Q4

REPORT INFORMATION
  Report Type: 
  Country: None (occurrence: None)
  Receive Date: 20061020
  Receipt Date: 20061012
  Transmission Date: 20070319
  Serious: Yes (Hospitalization, Other)
  Sender: FDA-Public Use
  Company Number: US-JNJFOC-20060804077

PATIENT
  Age: 2 Month
  Sex: Female

DRUGS (2)
  1. REMICADE [Suspect]
  2. REMICADE [Suspect]
     Indication: DRUG EXPOSURE DURING PREGNANCY

REACTIONS (7)
  - BONE NEOPLASM MALIGNANT [None]
  - DRUG EXPOSURE DURING PREGNANCY [None]
  - GASTRIC DISORDER [None]
  - LIVER DISORDER [None]
  - LUNG NEOPLASM MALIGNANT [None]
  - NEUROBLASTOMA [None]
  - RENAL DISORDER [None]
